FAERS Safety Report 25814294 (Version 1)
Quarter: 2025Q3

REPORT INFORMATION
  Report Type: Spontaneous
  Country: EU (occurrence: EU)
  Receive Date: 20250917
  Receipt Date: 20250917
  Transmission Date: 20251020
  Serious: Yes (Other)
  Sender: PFIZER
  Company Number: EU-009507513-2324554

PATIENT
  Age: 60 Year
  Sex: Female

DRUGS (10)
  1. CARBOPLATIN [Suspect]
     Active Substance: CARBOPLATIN
     Indication: Metastatic bronchial carcinoma
     Dates: start: 20230109, end: 20230329
  2. CARBOPLATIN [Suspect]
     Active Substance: CARBOPLATIN
     Dates: start: 20241011, end: 20241217
  3. PEMETREXED [Suspect]
     Active Substance: PEMETREXED
     Indication: Metastatic bronchial carcinoma
     Dates: start: 20230109, end: 20230329
  4. PEMETREXED [Suspect]
     Active Substance: PEMETREXED
     Dates: start: 20230419, end: 20240429
  5. PEMETREXED [Suspect]
     Active Substance: PEMETREXED
     Dates: start: 20241011, end: 20241217
  6. PEMETREXED [Suspect]
     Active Substance: PEMETREXED
     Dates: start: 20250107, end: 20250520
  7. KEYTRUDA [Suspect]
     Active Substance: PEMBROLIZUMAB
     Indication: Metastatic bronchial carcinoma
     Route: 042
     Dates: start: 20230109, end: 20230329
  8. KEYTRUDA [Suspect]
     Active Substance: PEMBROLIZUMAB
     Route: 042
     Dates: start: 20230419, end: 20240429
  9. KEYTRUDA [Suspect]
     Active Substance: PEMBROLIZUMAB
     Route: 042
     Dates: start: 20241011, end: 20241217
  10. KEYTRUDA [Suspect]
     Active Substance: PEMBROLIZUMAB
     Route: 042
     Dates: start: 20250107, end: 20250520

REACTIONS (3)
  - Extremity necrosis [Unknown]
  - Malignant neoplasm progression [Unknown]
  - Lymphadenopathy mediastinal [Unknown]

NARRATIVE: CASE EVENT DATE: 20240501
